FAERS Safety Report 17273093 (Version 3)
Quarter: 2020Q2

REPORT INFORMATION
  Report Type: Report from Study
  Country: US (occurrence: US)
  Receive Date: 20200115
  Receipt Date: 20200401
  Transmission Date: 20200713
  Serious: No
  Sender: FDA-Public Use
  Company Number: US-JNJFOC-20200117426

PATIENT
  Age: 65 Year
  Sex: Female
  Weight: 54.48 kg

DRUGS (3)
  1. SPRAVATO [Suspect]
     Active Substance: ESKETAMINE
     Indication: DEPRESSION
     Dates: start: 20191230
  2. SPRAVATO [Suspect]
     Active Substance: ESKETAMINE
     Dates: start: 20200106
  3. TRINTELLIX [Concomitant]
     Active Substance: VORTIOXETINE HYDROBROMIDE

REACTIONS (1)
  - Malignant hypertension [Recovered/Resolved]

NARRATIVE: CASE EVENT DATE: 20200106
